FAERS Safety Report 21838014 (Version 1)
Quarter: 2023Q1

REPORT INFORMATION
  Report Type: Spontaneous
  Country: CA (occurrence: None)
  Receive Date: 20230109
  Receipt Date: 20230109
  Transmission Date: 20230417
  Serious: Yes (Hospitalization)
  Sender: FDA-Public Use
  Company Number: CA-Merck Healthcare KGaA-9376444

PATIENT
  Age: 64 Year
  Sex: Female

DRUGS (1)
  1. BAVENCIO [Suspect]
     Active Substance: AVELUMAB
     Indication: Neuroendocrine carcinoma of the skin
     Route: 041

REACTIONS (7)
  - Cerebral haematoma [Unknown]
  - Confusional state [Unknown]
  - Fall [Unknown]
  - Headache [Unknown]
  - Muscular weakness [Unknown]
  - Somnolence [Unknown]
  - Thrombocytopenia [Unknown]
